FAERS Safety Report 15605310 (Version 2)
Quarter: 2018Q4

REPORT INFORMATION
  Report Type: Spontaneous
  Country: IT (occurrence: IT)
  Receive Date: 20181112
  Receipt Date: 20181204
  Transmission Date: 20190205
  Serious: Yes (Other)
  Sender: FDA-Public Use
  Company Number: IT-TEVA-2018-IT-974355

PATIENT
  Age: 4 Month
  Sex: Female

DRUGS (1)
  1. AMOXICILLINA [Suspect]
     Active Substance: AMOXICILLIN
     Indication: OROPHARYNGEAL PAIN
     Route: 065

REACTIONS (2)
  - Pyrexia [Unknown]
  - Drug eruption [Unknown]

NARRATIVE: CASE EVENT DATE: 20180208
